FAERS Safety Report 18650845 (Version 3)
Quarter: 2021Q1

REPORT INFORMATION
  Report Type: Spontaneous
  Country: JP (occurrence: JP)
  Receive Date: 20201222
  Receipt Date: 20210119
  Transmission Date: 20210419
  Serious: Yes (Death, Other)
  Sender: FDA-Public Use
  Company Number: JP-PURDUE-USA-2020-0191390

PATIENT
  Age: 64 Year
  Sex: Male

DRUGS (6)
  1. OXYCONTIN [Suspect]
     Active Substance: OXYCODONE HYDROCHLORIDE
     Dosage: 30 MG, DAILY
     Route: 065
  2. BETAMETHASONE. [Concomitant]
     Active Substance: BETAMETHASONE
     Dosage: UNK
  3. OXINORM [OXYCODONE HYDROCHLORIDE] [Suspect]
     Active Substance: OXYCODONE HYDROCHLORIDE
     Indication: CANCER PAIN
     Dosage: UNK
     Route: 065
  4. OXYCONTIN [Suspect]
     Active Substance: OXYCODONE HYDROCHLORIDE
     Indication: CANCER PAIN
     Dosage: 30 MG, DAILY
     Route: 065
  5. OXINORM [OXYCODONE HYDROCHLORIDE] [Suspect]
     Active Substance: OXYCODONE HYDROCHLORIDE
     Indication: CHEST PAIN
     Dosage: UNK
     Route: 065
  6. OXINORM [OXYCODONE HYDROCHLORIDE] [Suspect]
     Active Substance: OXYCODONE HYDROCHLORIDE
     Dosage: 10 MG, PRN
     Route: 065
     Dates: end: 20201026

REACTIONS (5)
  - Myocardial infarction [Fatal]
  - Chest pain [Unknown]
  - Constipation [Unknown]
  - Arrhythmia [Fatal]
  - Delirium [Not Recovered/Not Resolved]

NARRATIVE: CASE EVENT DATE: 20201026
